FAERS Safety Report 4946719-5 (Version None)
Quarter: 2006Q1

REPORT INFORMATION
  Report Type: 
  Country: None (occurrence: None)
  Receive Date: 20060317
  Receipt Date: 20051003
  Transmission Date: 20060701
  Serious: Yes (Death, Hospitalization)
  Sender: FDA-Public Use
  Company Number: US-MERCK-0510USA02773

PATIENT
  Age: 56 Year
  Sex: Female
  Weight: 84 kg

DRUGS (2)
  1. VIOXX [Suspect]
     Route: 048
     Dates: start: 20010820, end: 20010920
  2. VIOXX [Suspect]
     Route: 048
     Dates: start: 20010920, end: 20020315

REACTIONS (5)
  - ANEURYSM [None]
  - CEREBROVASCULAR DISORDER [None]
  - CIRCULATORY COLLAPSE [None]
  - HAEMORRHAGE [None]
  - INTRACRANIAL ANEURYSM [None]
